FAERS Safety Report 15422174 (Version 2)
Quarter: 2019Q1

REPORT INFORMATION
  Report Type: Spontaneous
  Country: DE (occurrence: DE)
  Receive Date: 20180924
  Receipt Date: 20190107
  Transmission Date: 20190417
  Serious: Yes (Hospitalization, Other)
  Sender: FDA-Public Use
  Company Number: PHHY2018DE101839

PATIENT
  Age: 34 Year
  Sex: Female
  Weight: 45 kg

DRUGS (7)
  1. CLINDAMYCIN. [Concomitant]
     Active Substance: CLINDAMYCIN
     Indication: INFECTION
     Dosage: 200 MG, Q8H
     Route: 048
     Dates: start: 20180706, end: 20180712
  2. ZONEGRAN [Concomitant]
     Active Substance: ZONISAMIDE
     Dosage: 1 DF, Q12H
     Dates: start: 201304
  3. ZEBINIX [Interacting]
     Active Substance: ESLICARBAZEPINE ACETATE
     Indication: PARTIAL SEIZURES
     Dosage: UNK
     Route: 048
  4. IBUPROFEN. [Suspect]
     Active Substance: IBUPROFEN
     Indication: PAIN
     Dosage: 600 MG, PRN ( TO 1800 MG, AS NEEDED)
     Route: 048
     Dates: start: 20180707, end: 20180710
  5. PERAMPANEL [Concomitant]
     Active Substance: PERAMPANEL
     Indication: EPILEPSY
     Dosage: 8 MG, QD (IN THE EVENING)
     Route: 048
     Dates: start: 201608
  6. ZEBINIX [Interacting]
     Active Substance: ESLICARBAZEPINE ACETATE
     Dosage: 1200 MG, QD
     Route: 048
     Dates: start: 20180701
  7. ZONEGRAN [Concomitant]
     Active Substance: ZONISAMIDE
     Indication: EPILEPSY
     Dosage: 500 MG, QD (200 MG IN MORNING AND 300 IN EVENING)
     Route: 048
     Dates: start: 201304

REACTIONS (4)
  - Headache [Recovered/Resolved]
  - General physical health deterioration [Unknown]
  - Hyponatraemia [Recovered/Resolved]
  - Drug interaction [Unknown]

NARRATIVE: CASE EVENT DATE: 201807
